FAERS Safety Report 10187239 (Version 1)
Quarter: 2014Q2

REPORT INFORMATION
  Report Type: Spontaneous
  Country: US (occurrence: None)
  Receive Date: 20140521
  Receipt Date: 20140521
  Transmission Date: 20141212
  Serious: Yes (Death)
  Sender: FDA-Public Use
  Company Number: None

PATIENT
  Age: 72 Year
  Sex: Female
  Weight: 57 kg

DRUGS (17)
  1. THYMOGLOBULIN 25 MG [Suspect]
     Indication: IMMUNOSUPPRESSION
     Route: 042
  2. SOLU- MEDROL 500MG [Concomitant]
  3. CEFAZOLIN 1GM [Concomitant]
  4. PANTOPRAZOLE 40 MG POWDER FOR SOLUTION FOR INJECTION [Concomitant]
  5. FENTANYL INFUSION [Concomitant]
  6. MIDAZOLAM INFUSION [Concomitant]
  7. NOREPINEPHRINE INFUSION [Concomitant]
  8. PHENYLEPHRINE INFUSION [Concomitant]
  9. FACTOR 7 3MG [Concomitant]
  10. DAPTOMYCIN 560 MG [Concomitant]
  11. DDAVP 20 MCG [Concomitant]
  12. GENTAMICIN 150 MG [Concomitant]
  13. MICAFUNGIN 100 MG [Concomitant]
  14. ZOSYN 3.375 GM PFIZER [Concomitant]
  15. VANCOMYCIN 1GM HOSPIRA [Concomitant]
  16. DOBUTAMINE INFUSION [Concomitant]
  17. DOPAMINE INFUSION [Concomitant]

REACTIONS (8)
  - Respiratory distress [None]
  - Acidosis [None]
  - Dialysis [None]
  - Hypotension [None]
  - Disseminated intravascular coagulation [None]
  - Abdominal compartment syndrome [None]
  - Dyspnoea [None]
  - Cardio-respiratory arrest [None]
